FAERS Safety Report 12797569 (Version 1)
Quarter: 2016Q3

REPORT INFORMATION
  Report Type: Report from Study
  Country: US (occurrence: US)
  Receive Date: 20160930
  Receipt Date: 20160930
  Transmission Date: 20161109
  Serious: Yes (Hospitalization, Other)
  Sender: FDA-Public Use
  Company Number: US-ROCHE-784723

PATIENT
  Age: 75 Year
  Sex: Female
  Weight: 71.4 kg

DRUGS (15)
  1. IXABEPILONE [Suspect]
     Active Substance: IXABEPILONE
     Dosage: OVER 1 HOUR ON DAY 1 TO 6 CYCLES.?COURSE ID 3
     Route: 042
  2. IXABEPILONE [Suspect]
     Active Substance: IXABEPILONE
     Dosage: OVER 1 HOUR ON DAY 1 TO 6 CYCLES.?COURSE ID 5
     Route: 042
  3. BEVACIZUMAB [Suspect]
     Active Substance: BEVACIZUMAB
     Dosage: OVER 30-90 MINUTES ON DAY 1.?COURSE ID 5
     Route: 042
  4. IXABEPILONE [Suspect]
     Active Substance: IXABEPILONE
     Indication: ENDOMETRIAL CANCER
     Dosage: OVER 1 HOUR ON DAY 1 TO 6 CYCLES.?COURSE ID 1
     Route: 042
  5. LOVENOX [Suspect]
     Active Substance: ENOXAPARIN SODIUM
     Indication: PRODUCT USED FOR UNKNOWN INDICATION
     Route: 065
  6. CARBOPLATIN. [Suspect]
     Active Substance: CARBOPLATIN
     Indication: ENDOMETRIAL CANCER
     Dosage: DOSE: AUC-6 OVER 30 MINUTES ON DAY 1
     Route: 042
     Dates: start: 20100504
  7. BEVACIZUMAB [Suspect]
     Active Substance: BEVACIZUMAB
     Dosage: CYCLE 7 PLUS: OVER 30-90 MINUTE ON DAY 1
     Route: 042
  8. BEVACIZUMAB [Suspect]
     Active Substance: BEVACIZUMAB
     Dosage: OVER 30-90 MINUTES ON DAY 1.?COURSE ID 4
     Route: 042
  9. IXABEPILONE [Suspect]
     Active Substance: IXABEPILONE
     Dosage: OVER 1 HOUR ON DAY 1 TO 6 CYCLES.?COURSE ID 2
     Route: 042
  10. IXABEPILONE [Suspect]
     Active Substance: IXABEPILONE
     Dosage: OVER 1 HOUR ON DAY 1 TO 6 CYCLES.?COURSE ID 6
     Route: 042
     Dates: start: 20100824, end: 20100824
  11. BEVACIZUMAB [Suspect]
     Active Substance: BEVACIZUMAB
     Dosage: OVER 30-90 MINUTES ON DAY 1.?COURSE ID 3
     Route: 042
  12. BEVACIZUMAB [Suspect]
     Active Substance: BEVACIZUMAB
     Dosage: OVER 30-90 MINUTES ON DAY 1.?COURSE ID 6
     Route: 042
     Dates: start: 20100824, end: 20100824
  13. IXABEPILONE [Suspect]
     Active Substance: IXABEPILONE
     Dosage: OVER 1 HOUR ON DAY 1 TO 6 CYCLES.?COURSE ID 4
     Route: 042
  14. BEVACIZUMAB [Suspect]
     Active Substance: BEVACIZUMAB
     Dosage: OVER 30-90 MINUTES ON DAY 1.?COURSE ID 2
     Route: 042
  15. BEVACIZUMAB [Suspect]
     Active Substance: BEVACIZUMAB
     Indication: ENDOMETRIAL CANCER
     Dosage: CYCLE 21 DAYS: OVER 30-90 MINUTES ON DAY 1.?COURSE ID 1
     Route: 042

REACTIONS (14)
  - Sepsis [Recovered/Resolved]
  - Acidosis [Unknown]
  - White blood cell count decreased [Unknown]
  - Pelvic infection [Recovered/Resolved]
  - Hypoalbuminaemia [Unknown]
  - Hypocalcaemia [Unknown]
  - Hypokalaemia [Unknown]
  - Platelet count decreased [Unknown]
  - Rectal haemorrhage [Recovered/Resolved]
  - Hyponatraemia [Unknown]
  - Anaemia [Unknown]
  - Neutrophil count decreased [Unknown]
  - Blood bilirubin increased [Unknown]
  - Hypophosphataemia [Unknown]

NARRATIVE: CASE EVENT DATE: 20100915
